FAERS Safety Report 5879951-7 (Version None)
Quarter: 2008Q3

REPORT INFORMATION
  Report Type: 
  Country: None (occurrence: None)
  Receive Date: 20080912
  Receipt Date: 20080902
  Transmission Date: 20090109
  Serious: Yes (Other)
  Sender: FDA-Public Use
  Company Number: BR-PFIZER INC-2007102571

PATIENT
  Sex: Male

DRUGS (2)
  1. DETRUSITOL LA [Suspect]
     Indication: HYPERTONIC BLADDER
     Route: 048
     Dates: start: 20070901, end: 20080201
  2. CARDURA [Concomitant]
     Route: 048
     Dates: start: 20070901

REACTIONS (6)
  - BLOOD PRESSURE DECREASED [None]
  - CARDIAC MURMUR [None]
  - DRUG INTERACTION [None]
  - HYPERTENSION [None]
  - INFLUENZA [None]
  - URETHRAL OBSTRUCTION [None]
